FAERS Safety Report 22060538 (Version 1)
Quarter: 2023Q1

REPORT INFORMATION
  Report Type: Spontaneous
  Country: US (occurrence: None)
  Receive Date: 20230303
  Receipt Date: 20230303
  Transmission Date: 20230417
  Serious: No
  Sender: FDA-Public Use
  Company Number: 2023A018155

PATIENT
  Age: 872 Month
  Sex: Female
  Weight: 95.3 kg

DRUGS (1)
  1. SYMBICORT [Suspect]
     Active Substance: BUDESONIDE\FORMOTEROL FUMARATE DIHYDRATE
     Indication: Cough
     Dosage: 160/4.5 MCG, 120 INHALATION INHALER, TWO PUFFS TWICE A DAY
     Route: 055
     Dates: start: 202209

REACTIONS (7)
  - Cough [Unknown]
  - Drug ineffective for unapproved indication [Not Recovered/Not Resolved]
  - Wrong technique in device usage process [Unknown]
  - Off label use [Unknown]
  - Incorrect dose administered by device [Unknown]
  - Drug dose omission by device [Unknown]
  - Product packaging quantity issue [Unknown]

NARRATIVE: CASE EVENT DATE: 20220901
